FAERS Safety Report 5084912-4 (Version None)
Quarter: 2006Q3

REPORT INFORMATION
  Report Type: 
  Country: None (occurrence: None)
  Receive Date: 20060821
  Receipt Date: 20060817
  Transmission Date: 20061208
  Serious: Yes (Hospitalization, Other)
  Sender: FDA-Public Use
  Company Number: US-BOEHRINGER INGELHEIM PHARMACEUTICALS, INC.-2006-BP-09549BP

PATIENT
  Sex: Male

DRUGS (3)
  1. SPIRIVA [Suspect]
     Indication: CHRONIC OBSTRUCTIVE PULMONARY DISEASE
     Route: 055
     Dates: start: 20040601
  2. SPIRIVA [Suspect]
     Indication: EMPHYSEMA
  3. DUONEB [Concomitant]
     Route: 055

REACTIONS (4)
  - ACARODERMATITIS [None]
  - CHRONIC OBSTRUCTIVE PULMONARY DISEASE [None]
  - PROSTATE CANCER [None]
  - PRURITUS [None]
